FAERS Safety Report 16760942 (Version 1)
Quarter: 2019Q3

REPORT INFORMATION
  Report Type: Spontaneous
  Country: IT (occurrence: IT)
  Receive Date: 20190830
  Receipt Date: 20190830
  Transmission Date: 20191005
  Serious: Yes (Hospitalization, Other)
  Sender: FDA-Public Use
  Company Number: IT-VELOXIS PHARMACEUTICALS-2019VELIT-000416

PATIENT
  Age: 22 Year
  Sex: Male

DRUGS (2)
  1. MYCOPHENOLATE MOFETIL. [Suspect]
     Active Substance: MYCOPHENOLATE MOFETIL
     Indication: IMMUNOSUPPRESSANT DRUG THERAPY
     Dosage: UNK
     Route: 065
  2. ENVARSUS XR [Suspect]
     Active Substance: TACROLIMUS
     Indication: IMMUNOSUPPRESSANT DRUG THERAPY
     Dosage: UNK

REACTIONS (6)
  - Haemorrhagic arteriovenous malformation [Unknown]
  - Drug interaction [Unknown]
  - Pulmonary tuberculosis [Recovered/Resolved]
  - Hepatic enzyme increased [Unknown]
  - Liver transplant rejection [Unknown]
  - Drug level below therapeutic [Unknown]
